FAERS Safety Report 6829826-1 (Version None)
Quarter: 2010Q3

REPORT INFORMATION
  Report Type: 
  Country: None (occurrence: None)
  Receive Date: 20100706
  Receipt Date: 20100623
  Transmission Date: 20110219
  Serious: Yes (Life-Threatening, Hospitalization)
  Sender: FDA-Public Use
  Company Number: 2010SP001797

PATIENT
  Sex: Male

DRUGS (2)
  1. BROVANA [Suspect]
     Dosage: 15 UG/2ML BID, INHALATION
     Route: 055
     Dates: start: 20100601, end: 20100601
  2. BROVANA [Suspect]
     Dosage: 15 UG/2ML BID, INHALATION
     Route: 055
     Dates: start: 20100601

REACTIONS (2)
  - ATRIOVENTRICULAR BLOCK COMPLETE [None]
  - BRADYCARDIA [None]
